FAERS Safety Report 5797833-6 (Version None)
Quarter: 2008Q2

REPORT INFORMATION
  Report Type: 
  Country: None (occurrence: None)
  Receive Date: 20080630
  Receipt Date: 20080619
  Transmission Date: 20081010
  Serious: Yes (Other)
  Sender: FDA-Public Use
  Company Number: CIP08001164

PATIENT
  Age: 75 Year
  Sex: Male

DRUGS (4)
  1. FURADANTINE(INTROFURANTOIN MACROCRYSTALS) CAPSULE, UNKNOWNMG [Suspect]
     Dosage: 1 DOSAGE FORM DAILY FOR 15 DAYS, ORAL
     Route: 048
     Dates: start: 20080604, end: 20080619
  2. PREVISCAN(FLUINDIONE) TABLET, 20MG [Suspect]
     Dosage: ORAL
     Route: 048
  3. PROSCAR [Concomitant]
  4. URISPAS [Concomitant]

REACTIONS (2)
  - DRUG INTERACTION [None]
  - HAEMATURIA [None]
